FAERS Safety Report 5747131-1 (Version None)
Quarter: 2008Q2

REPORT INFORMATION
  Report Type: 
  Country: None (occurrence: None)
  Receive Date: 20080522
  Receipt Date: 20080522
  Transmission Date: 20081010
  Serious: Yes (Hospitalization)
  Sender: FDA-Public Use
  Company Number: CA-ABBOTT-08P-028-0451028-00

PATIENT
  Sex: Female

DRUGS (2)
  1. BIAXIN [Suspect]
     Indication: SINUSITIS
     Route: 048
     Dates: start: 20080406, end: 20080410
  2. CIPRALEX FILM-COATED TABLETS [Interacting]
     Indication: DRUG USE FOR UNKNOWN INDICATION
     Route: 048
     Dates: start: 20080308, end: 20080406

REACTIONS (8)
  - AGITATION [None]
  - ANXIETY [None]
  - DRUG INTERACTION [None]
  - INSOMNIA [None]
  - MOOD SWINGS [None]
  - PALPITATIONS [None]
  - SINUSITIS [None]
  - THINKING ABNORMAL [None]
